FAERS Safety Report 8446339-4 (Version None)
Quarter: 2012Q2

REPORT INFORMATION
  Report Type: 
  Country: None (occurrence: None)
  Receive Date: 20120618
  Receipt Date: 20120605
  Transmission Date: 20120825
  Serious: Yes (Hospitalization)
  Sender: FDA-Public Use
  Company Number: US-ABBOTT-12P-163-0933892-00

PATIENT
  Sex: Female
  Weight: 52.664 kg

DRUGS (2)
  1. HUMIRA [Suspect]
     Indication: CROHN'S DISEASE
     Route: 058
     Dates: start: 20070101, end: 20120430
  2. HUMIRA [Suspect]
     Dates: start: 20120407

REACTIONS (6)
  - SMALL INTESTINAL STENOSIS [None]
  - DIARRHOEA [None]
  - FLATULENCE [None]
  - COLONIC STENOSIS [None]
  - CONSTIPATION [None]
  - CROHN'S DISEASE [None]
